FAERS Safety Report 13574383 (Version 12)
Quarter: 2017Q4

REPORT INFORMATION
  Report Type: Report from Study
  Country: US (occurrence: US)
  Receive Date: 20170523
  Receipt Date: 20171228
  Transmission Date: 20180320
  Serious: Yes (Hospitalization, Other)
  Sender: FDA-Public Use
  Company Number: US-BAYER-2017-086192

PATIENT
  Age: 83 Year
  Sex: Male
  Weight: 76.19 kg

DRUGS (14)
  1. ADEMPAS [Suspect]
     Active Substance: RIOCIGUAT
     Indication: PULMONARY ARTERIAL HYPERTENSION
     Dosage: 1.0 MG, TID
     Route: 048
  2. ADEMPAS [Suspect]
     Active Substance: RIOCIGUAT
     Indication: PULMONARY ARTERIAL HYPERTENSION
     Dosage: 1MG IN AM, 0.5MG IN
  3. XARELTO [Concomitant]
     Active Substance: RIVAROXABAN
     Dosage: UNK
  4. NIFEDIPINE. [Concomitant]
     Active Substance: NIFEDIPINE
     Dosage: UNK
  5. ADEMPAS [Suspect]
     Active Substance: RIOCIGUAT
     Indication: PULMONARY ARTERIAL HYPERTENSION
     Dosage: 1 MG, TID
     Route: 048
  6. ADEMPAS [Suspect]
     Active Substance: RIOCIGUAT
     Indication: PULMONARY ARTERIAL HYPERTENSION
     Dosage: 1.5 MG, TID
     Route: 048
  7. UPTRAVI [Suspect]
     Active Substance: SELEXIPAG
     Dosage: UNK
  8. OPSUMIT [Concomitant]
     Active Substance: MACITENTAN
     Dosage: UNK
  9. ADEMPAS [Suspect]
     Active Substance: RIOCIGUAT
     Indication: PULMONARY ARTERIAL HYPERTENSION
     Dosage: UNK
     Dates: start: 20170411
  10. ADEMPAS [Suspect]
     Active Substance: RIOCIGUAT
     Indication: PULMONARY ARTERIAL HYPERTENSION
     Dosage: 1 MG, TID
     Route: 048
  11. ADEMPAS [Suspect]
     Active Substance: RIOCIGUAT
     Indication: PULMONARY ARTERIAL HYPERTENSION
     Dosage: 0.5 MG, TID
     Route: 048
  12. ADEMPAS [Suspect]
     Active Substance: RIOCIGUAT
     Indication: PULMONARY ARTERIAL HYPERTENSION
     Dosage: 0.5 MG, TID
     Route: 048
  13. ADEMPAS [Suspect]
     Active Substance: RIOCIGUAT
     Indication: PULMONARY ARTERIAL HYPERTENSION
     Dosage: DAILY DOSE 2.5 MG
     Route: 048
  14. LASIX [Concomitant]
     Active Substance: FUROSEMIDE
     Dosage: UNK UNK, OW
     Route: 041

REACTIONS (36)
  - Respiratory distress [Unknown]
  - Pulmonary arterial hypertension [Unknown]
  - Dehydration [None]
  - Malaise [None]
  - Cognitive disorder [Unknown]
  - Fatigue [Unknown]
  - Oxygen saturation decreased [Unknown]
  - Oedema peripheral [Not Recovered/Not Resolved]
  - Oedema [Unknown]
  - Oedema peripheral [None]
  - Arthralgia [Unknown]
  - Balance disorder [Unknown]
  - Dyspnoea exertional [Unknown]
  - Weight decreased [None]
  - Drug dose omission [None]
  - Fall [Unknown]
  - Ascites [Not Recovered/Not Resolved]
  - Underdose [None]
  - Vomiting [None]
  - Confusional state [Unknown]
  - Hypotension [Unknown]
  - Arthralgia [None]
  - Incorrect dose administered [None]
  - Oxygen saturation decreased [Not Recovered/Not Resolved]
  - Peripheral swelling [Not Recovered/Not Resolved]
  - Myalgia [Unknown]
  - Cardiogenic shock [Unknown]
  - Tongue coated [Unknown]
  - Fall [None]
  - Abdominal distension [Not Recovered/Not Resolved]
  - Dyspnoea [Unknown]
  - Rales [Not Recovered/Not Resolved]
  - Syncope [Unknown]
  - Oedema peripheral [Not Recovered/Not Resolved]
  - Off label use [None]
  - Decreased appetite [Unknown]

NARRATIVE: CASE EVENT DATE: 201705
